FAERS Safety Report 7424331-6 (Version None)
Quarter: 2011Q2

REPORT INFORMATION
  Report Type: 
  Country: None (occurrence: None)
  Receive Date: 20110419
  Receipt Date: 20110406
  Transmission Date: 20111010
  Serious: No
  Sender: FDA-Public Use
  Company Number: US-ROXANE LABORATORIES, INC.-2011-RO-00499RO

PATIENT
  Sex: Female

DRUGS (5)
  1. ZOLPIDEM [Suspect]
     Dosage: 5 MG
     Route: 048
  2. FISH OIL [Concomitant]
  3. NAPROXEN (ALEVE) [Concomitant]
  4. GLUCOSAMINE [Concomitant]
  5. ZOLPIDEM [Suspect]
     Indication: INSOMNIA
     Dosage: 10 MG
     Route: 048

REACTIONS (1)
  - AMNESIA [None]
